FAERS Safety Report 7511718-6 (Version None)
Quarter: 2011Q2

REPORT INFORMATION
  Report Type: 
  Country: None (occurrence: None)
  Receive Date: 20110531
  Receipt Date: 20110415
  Transmission Date: 20111010
  Serious: No
  Sender: FDA-Public Use
  Company Number: US-JNJFOC-20110408837

PATIENT
  Age: 29 Year
  Sex: Female

DRUGS (7)
  1. LAMOTRIGINE [Suspect]
     Indication: BIPOLAR DISORDER
     Route: 065
  2. PALIPERIDONE [Suspect]
     Indication: BIPOLAR DISORDER
     Route: 048
  3. HALOPERIDOL [Suspect]
     Route: 065
  4. VALPROATE SODIUM [Suspect]
     Route: 065
  5. VALPROATE SODIUM [Suspect]
     Indication: BIPOLAR DISORDER
     Route: 065
  6. HALOPERIDOL [Suspect]
     Indication: BIPOLAR DISORDER
     Route: 065
  7. CLOZAPINE [Suspect]
     Indication: BIPOLAR DISORDER
     Route: 065

REACTIONS (2)
  - MANIA [None]
  - DRUG INEFFECTIVE [None]
